FAERS Safety Report 7205808-5 (Version None)
Quarter: 2010Q4

REPORT INFORMATION
  Report Type: 
  Country: None (occurrence: None)
  Receive Date: 20101231
  Receipt Date: 20101222
  Transmission Date: 20110411
  Serious: Yes (Other)
  Sender: FDA-Public Use
  Company Number: US-MERCK-1012USA03691

PATIENT
  Age: 72 Year
  Sex: Female

DRUGS (6)
  1. COZAAR [Suspect]
     Indication: HYPERTENSION
     Route: 048
     Dates: start: 20100101, end: 20101126
  2. COZAAR [Suspect]
     Route: 048
     Dates: start: 20030101
  3. TOPROL-XL [Concomitant]
     Route: 065
  4. METOPROLOL [Concomitant]
     Route: 065
  5. PLAVIX [Concomitant]
     Route: 065
  6. LIPITOR [Concomitant]
     Route: 065

REACTIONS (3)
  - ADVERSE EVENT [None]
  - COUGH [None]
  - DRY THROAT [None]
